FAERS Safety Report 17048421 (Version 1)
Quarter: 2019Q4

REPORT INFORMATION
  Report Type: Report from Study
  Country: US (occurrence: US)
  Receive Date: 20191119
  Receipt Date: 20191119
  Transmission Date: 20200122
  Serious: Yes (Hospitalization, Other)
  Sender: FDA-Public Use
  Company Number: US-GILEAD-2019-0437138

PATIENT
  Age: 45 Year
  Sex: Male
  Weight: 100 kg

DRUGS (29)
  1. EFAVIRENZ. [Suspect]
     Active Substance: EFAVIRENZ
     Indication: HIV INFECTION
     Dosage: 600 MG, QD
     Route: 048
     Dates: start: 20060628
  2. LOVENOX [Concomitant]
     Active Substance: ENOXAPARIN SODIUM
     Indication: THROMBOSIS
     Route: 065
     Dates: start: 20070411, end: 20070412
  3. ARANESP [Concomitant]
     Active Substance: DARBEPOETIN ALFA
     Indication: ANAEMIA
     Route: 065
     Dates: start: 20070815, end: 20070815
  4. VALCYTE [Concomitant]
     Active Substance: VALGANCICLOVIR HYDROCHLORIDE
     Indication: CYTOMEGALOVIRUS CHORIORETINITIS
     Route: 065
     Dates: start: 20010905
  5. HEPARIN [Concomitant]
     Active Substance: HEPARIN SODIUM
     Indication: THROMBOSIS
     Route: 065
     Dates: start: 20070409, end: 20070409
  6. ONDANSETRON [Concomitant]
     Active Substance: ONDANSETRON
     Route: 065
     Dates: start: 20070507, end: 20070507
  7. FLUOROURACIL. [Concomitant]
     Active Substance: FLUOROURACIL
     Indication: ANAL CANCER
     Route: 065
     Dates: start: 20070507, end: 20070511
  8. VANCOMYCIN [Concomitant]
     Active Substance: VANCOMYCIN
     Indication: FEBRILE NEUTROPENIA
     Route: 065
     Dates: start: 20070417, end: 20070417
  9. CILASTATIN SODIUM;IMIPENEM [Concomitant]
     Active Substance: CILASTATIN SODIUM\IMIPENEM
     Indication: FEBRILE NEUTROPENIA
     Route: 065
     Dates: start: 20070413, end: 20070413
  10. NEUPOGEN [Concomitant]
     Active Substance: FILGRASTIM
     Indication: NEUTROPENIA
     Route: 065
     Dates: start: 20060319
  11. FLUCONAZOLE. [Concomitant]
     Active Substance: FLUCONAZOLE
     Indication: ANTIFUNGAL PROPHYLAXIS
     Route: 065
     Dates: start: 20060329
  12. PEGFILGRASTIM [Concomitant]
     Active Substance: PEGFILGRASTIM
     Indication: NEUTROPENIA
     Route: 065
     Dates: start: 20070512, end: 20070512
  13. NORVIR [Suspect]
     Active Substance: RITONAVIR
     Indication: HIV INFECTION
     Dosage: DOSAGE FORM: CAPSULE
     Route: 048
     Dates: start: 20060628
  14. NASONEX [Concomitant]
     Active Substance: MOMETASONE FUROATE
     Indication: RHINITIS ALLERGIC
     Route: 065
     Dates: start: 20060920
  15. KLONOPIN [Concomitant]
     Active Substance: CLONAZEPAM
     Indication: ANXIETY
     Route: 065
     Dates: start: 20011212
  16. HYDROCODONE BITARTRATE;PARACETAMOL [Concomitant]
     Indication: PAIN
     Route: 065
     Dates: start: 20070417, end: 20070417
  17. SEPTRA DS [Concomitant]
     Active Substance: SULFAMETHOXAZOLE\TRIMETHOPRIM
     Indication: PROPHYLAXIS
     Route: 065
     Dates: start: 20060319
  18. CILASTATIN SODIUM;IMIPENEM [Concomitant]
     Active Substance: CILASTATIN SODIUM\IMIPENEM
     Indication: FEBRILE NEUTROPENIA
     Route: 065
     Dates: start: 20070414, end: 20070417
  19. ATIVAN [Concomitant]
     Active Substance: LORAZEPAM
     Indication: ANXIETY
     Route: 065
     Dates: start: 20010328
  20. EMTRICITABINE/TENOFOVIR DISOPROXIL FUMARATE [Suspect]
     Active Substance: EMTRICITABINE\TENOFOVIR DISOPROXIL FUMARATE
     Indication: HIV INFECTION
     Dosage: 500 MG, QD
     Route: 048
     Dates: start: 20060628
  21. WARFARIN [Concomitant]
     Active Substance: WARFARIN
     Indication: THROMBOSIS
     Route: 065
     Dates: start: 20070413, end: 20070414
  22. VITAMINS NOS [Concomitant]
     Active Substance: VITAMINS
     Indication: NUTRITIONAL SUPPLEMENTATION
     Route: 065
     Dates: start: 20060319
  23. MITOMYCIN. [Concomitant]
     Active Substance: MITOMYCIN
     Indication: ANAL CANCER
     Route: 065
     Dates: start: 20070402, end: 20070507
  24. ENSURE ACTI M2 [Concomitant]
     Indication: NUTRITIONAL SUPPLEMENTATION
     Route: 065
     Dates: start: 20060319
  25. DEXAMETHASONE. [Concomitant]
     Active Substance: DEXAMETHASONE
     Route: 065
     Dates: start: 20070507, end: 20070507
  26. LASIX [Concomitant]
     Active Substance: FUROSEMIDE
     Indication: FLUID RETENTION
     Route: 065
     Dates: start: 20070808
  27. ZITHROMAX [Concomitant]
     Active Substance: AZITHROMYCIN DIHYDRATE
     Indication: PROPHYLAXIS
     Route: 065
     Dates: start: 20060319
  28. DARUNAVIR ALVOGEN [Suspect]
     Active Substance: DARUNAVIR
     Indication: HIV INFECTION
     Dosage: 1200 MG, QD
     Route: 048
     Dates: start: 20060628
  29. DICLOXACILLIN [Concomitant]
     Active Substance: DICLOXACILLIN
     Indication: CELLULITIS
     Route: 065
     Dates: start: 20060329

REACTIONS (6)
  - Venous thrombosis [Recovered/Resolved]
  - Axillary vein thrombosis [Recovered/Resolved]
  - Subclavian vein thrombosis [Recovered/Resolved]
  - Aplasia pure red cell [Not Recovered/Not Resolved]
  - Febrile neutropenia [Recovered/Resolved]
  - Squamous cell carcinoma [Recovered/Resolved]

NARRATIVE: CASE EVENT DATE: 20070313
